FAERS Safety Report 4811491-6 (Version None)
Quarter: 2005Q4

REPORT INFORMATION
  Report Type: 
  Country: None (occurrence: None)
  Receive Date: 20051025
  Receipt Date: 20051017
  Transmission Date: 20060501
  Serious: Yes (Life-Threatening, Hospitalization, Other)
  Sender: FDA-Public Use
  Company Number: ITWYE062318OCT05

PATIENT

DRUGS (1)
  1. TAZOCIN (PIPERACILLIN/TAZOBACTAM, INJECTION) [Suspect]
     Dosage: 4.5 G 1X PER 1 DAY
     Route: 042

REACTIONS (2)
  - INCORRECT DRUG ADMINISTRATION RATE [None]
  - RESPIRATORY DISTRESS [None]
